FAERS Safety Report 22366853 (Version 6)
Quarter: 2025Q1

REPORT INFORMATION
  Report Type: Spontaneous
  Country: US (occurrence: US)
  Receive Date: 20230525
  Receipt Date: 20250206
  Transmission Date: 20250409
  Serious: No
  Sender: PFIZER
  Company Number: US-PFIZER INC-202300197887

PATIENT
  Age: 70 Year
  Sex: Female
  Weight: 65.76 kg

DRUGS (1)
  1. IBRANCE [Suspect]
     Active Substance: PALBOCICLIB
     Indication: Breast cancer female
     Route: 048

REACTIONS (5)
  - Rash [Recovering/Resolving]
  - Sensitive skin [Recovering/Resolving]
  - Neoplasm progression [Unknown]
  - Speech disorder [Unknown]
  - Oropharyngeal pain [Unknown]
